FAERS Safety Report 8963367 (Version 1)
Quarter: 2012Q4

REPORT INFORMATION
  Report Type: Report from Study
  Country: DE (occurrence: DE)
  Receive Date: 20121214
  Receipt Date: 20121214
  Transmission Date: 20130627
  Serious: Yes (Hospitalization)
  Sender: FDA-Public Use
  Company Number: DE-BIOGENIDEC-2012BI059337

PATIENT
  Age: 34 Year
  Sex: Male

DRUGS (3)
  1. TYSABRI [Suspect]
     Indication: MULTIPLE SCLEROSIS
     Route: 042
     Dates: start: 20120904
  2. SPASMEX [Concomitant]
     Indication: BLADDER DISORDER
     Dates: start: 20121011
  3. ZOPICLONE [Concomitant]
     Indication: INSOMNIA
     Dates: start: 20121008

REACTIONS (1)
  - Depressive symptom [Not Recovered/Not Resolved]
